FAERS Safety Report 9070474 (Version 2)
Quarter: 2013Q2

REPORT INFORMATION
  Report Type: Report from Study
  Country: JP (occurrence: JP)
  Receive Date: 20130215
  Receipt Date: 20130614
  Transmission Date: 20140414
  Serious: Yes (Hospitalization, Disabling)
  Sender: FDA-Public Use
  Company Number: JP-AMGEN-JPNCT2013010740

PATIENT
  Age: 69 Year
  Sex: Male
  Weight: 71 kg

DRUGS (41)
  1. DARBEPOETIN ALFA [Suspect]
     Indication: NEPHROGENIC ANAEMIA
     Dosage: 60 MUG, Q3WK
     Route: 040
     Dates: start: 20110221, end: 20110314
  2. DARBEPOETIN ALFA [Suspect]
     Dosage: 60 MUG, Q4WK
     Route: 040
     Dates: start: 20110411, end: 20110606
  3. DARBEPOETIN ALFA [Suspect]
     Dosage: 60 MUG, Q2WK
     Route: 040
     Dates: start: 20110620, end: 20110912
  4. DARBEPOETIN ALFA [Suspect]
     Dosage: 60 MUG, QD
     Route: 040
     Dates: start: 20111003, end: 20111003
  5. DARBEPOETIN ALFA [Suspect]
     Dosage: 140 MUG, QD
     Route: 040
     Dates: start: 20111031, end: 20111031
  6. DARBEPOETIN ALFA [Suspect]
     Dosage: 160 MUG, Q4WK
     Route: 040
     Dates: start: 20111128, end: 20111226
  7. DARBEPOETIN ALFA [Suspect]
     Dosage: 180 MUG, Q4WK
     Route: 040
     Dates: start: 20120123, end: 20120220
  8. DARBEPOETIN ALFA [Suspect]
     Dosage: 100 MUG, QD
     Route: 040
     Dates: start: 20120319, end: 20120319
  9. DARBEPOETIN ALFA [Suspect]
     Dosage: 180 MUG, Q4WK
     Route: 040
     Dates: start: 20120402, end: 20120627
  10. DARBEPOETIN ALFA [Suspect]
     Dosage: 100 MUG, Q2WK
     Route: 040
     Dates: start: 20120723, end: 20120820
  11. DARBEPOETIN ALFA [Suspect]
     Dosage: 80 MUG, Q2WK
     Route: 040
     Dates: start: 20120903, end: 20121003
  12. DARBEPOETIN ALFA [Suspect]
     Dosage: 60 MUG, Q2WK
     Route: 040
     Dates: start: 20121017, end: 20130109
  13. MEVALOTIN [Suspect]
     Dosage: UNK
     Route: 048
  14. MICARDIS [Concomitant]
     Indication: GLOMERULONEPHRITIS CHRONIC
     Dosage: UNK
     Route: 048
  15. ZYLORIC [Concomitant]
     Dosage: UNK
     Route: 048
  16. PARIET [Concomitant]
     Dosage: UNK
     Route: 048
  17. SODIUM BICARBONATE [Concomitant]
     Indication: GLOMERULONEPHRITIS CHRONIC
     Dosage: UNK
     Route: 048
  18. MARZULENE-S [Concomitant]
     Dosage: UNK
     Route: 048
  19. ADALAT CR [Concomitant]
     Indication: GLOMERULONEPHRITIS CHRONIC
     Dosage: UNK
     Route: 048
  20. EPADEL-S [Concomitant]
     Dosage: UNK
     Route: 048
  21. NEUROTROPIN [Concomitant]
     Dosage: UNK
     Route: 048
  22. PRECIPITATED CALCIUM CARBONATE [Concomitant]
     Indication: GLOMERULONEPHRITIS CHRONIC
     Dosage: UNK
     Route: 048
  23. LASIX [Concomitant]
     Indication: GLOMERULONEPHRITIS CHRONIC
     Dosage: UNK
     Route: 048
  24. MYSER [Concomitant]
     Dosage: UNK
     Route: 061
  25. KREMEZIN [Concomitant]
     Indication: GLOMERULONEPHRITIS CHRONIC
     Dosage: UNK
     Route: 048
  26. LOXONIN [Concomitant]
     Dosage: UNK
     Route: 062
  27. LYRICA [Concomitant]
     Dosage: UNK
     Route: 048
  28. METHYCOBAL [Concomitant]
     Dosage: UNK
     Route: 048
  29. HARNAL D [Concomitant]
     Dosage: UNK
     Route: 048
  30. NORVASC [Concomitant]
     Indication: GLOMERULONEPHRITIS CHRONIC
     Dosage: UNK
     Route: 048
  31. MICAMLO [Concomitant]
     Indication: GLOMERULONEPHRITIS CHRONIC
     Dosage: UNK
     Route: 048
  32. ARGAMATE [Concomitant]
     Indication: GLOMERULONEPHRITIS CHRONIC
     Dosage: UNK
     Route: 048
  33. FORSENID [Concomitant]
     Dosage: UNK
     Route: 048
  34. HIRUDOID [Concomitant]
     Dosage: UNK
     Route: 061
  35. ROCALTROL [Concomitant]
     Indication: GLOMERULONEPHRITIS CHRONIC
     Dosage: UNK
     Route: 048
  36. CEFAMEZIN ALPHA [Concomitant]
     Indication: PREMEDICATION
     Dosage: UNK
     Route: 040
  37. INFLUENZA HA VACCINE [Concomitant]
     Indication: PROPHYLAXIS
     Dosage: UNK
     Route: 040
  38. ALFAROL [Concomitant]
     Indication: GLOMERULONEPHRITIS CHRONIC
     Dosage: UNK
     Route: 048
  39. URINORM [Concomitant]
     Dosage: UNK
     Route: 048
  40. BLADDERON [Concomitant]
     Dosage: UNK
     Route: 048
  41. CARDENALIN [Concomitant]
     Indication: GLOMERULONEPHRITIS CHRONIC
     Dosage: UNK
     Route: 048

REACTIONS (11)
  - Renal failure chronic [Recovered/Resolved with Sequelae]
  - Hyperkalaemia [Not Recovered/Not Resolved]
  - Hyperlipidaemia [Recovering/Resolving]
  - Hyperuricaemia [Recovered/Resolved]
  - Hyperphosphataemia [Recovering/Resolving]
  - Beta 2 microglobulin urine increased [Not Recovered/Not Resolved]
  - Beta-N-acetyl-D-glucosaminidase increased [Not Recovered/Not Resolved]
  - Constipation [Not Recovered/Not Resolved]
  - Bronchitis [Recovering/Resolving]
  - Rhabdomyolysis [Recovering/Resolving]
  - Rhinitis allergic [Recovering/Resolving]
